FAERS Safety Report 8287400-7 (Version None)
Quarter: 2012Q2

REPORT INFORMATION
  Report Type: 
  Country: None (occurrence: None)
  Receive Date: 20120416
  Receipt Date: 20120411
  Transmission Date: 20120825
  Serious: Yes (Death)
  Sender: FDA-Public Use
  Company Number: FR-PFIZER INC-2012089855

PATIENT
  Age: 61 Year
  Sex: Female

DRUGS (6)
  1. CYTARABINE [Suspect]
     Dosage: 50 MG/M2, UNK
     Route: 058
     Dates: start: 20120123, end: 20120131
  2. DAUNORUBICIN [Concomitant]
     Dosage: 60 MG/M2, UNK
     Dates: start: 20111102
  3. CYTARABINE [Suspect]
     Dosage: UNK
     Dates: start: 20120302, end: 20120307
  4. CYTARABINE [Suspect]
     Dosage: 200 MG/M2, UNK
     Dates: start: 20111102
  5. CYTARABINE [Suspect]
     Dosage: 300 MG/M2, UNK
     Route: 042
     Dates: start: 20110126
  6. DAUNORUBICIN [Concomitant]
     Dosage: 30 MG/M2, UNK
     Dates: start: 20120123, end: 20120131

REACTIONS (2)
  - SEPTIC SHOCK [None]
  - BONE MARROW FAILURE [None]
